FAERS Safety Report 16338662 (Version 1)
Quarter: 2019Q2

REPORT INFORMATION
  Report Type: Spontaneous
  Country: US (occurrence: US)
  Receive Date: 20190521
  Receipt Date: 20190521
  Transmission Date: 20190711
  Serious: No
  Sender: FDA-Public Use
  Company Number: US-CELGENEUS-USA-20190506057

PATIENT
  Age: 25 Year
  Sex: Male

DRUGS (1)
  1. OTEZLA [Suspect]
     Active Substance: APREMILAST
     Indication: PRODUCT USED FOR UNKNOWN INDICATION
     Dosage: STARTER KITS (DAY 1, DAY 1, DAY 1 DAY 2, DAY 2, DAY 2)
     Route: 048
     Dates: start: 20190510

REACTIONS (2)
  - Nightmare [Unknown]
  - Nausea [Unknown]

NARRATIVE: CASE EVENT DATE: 201905
